FAERS Safety Report 5444944-0 (Version None)
Quarter: 2007Q3

REPORT INFORMATION
  Report Type: 
  Country: None (occurrence: None)
  Receive Date: 20070906
  Receipt Date: 20070906
  Transmission Date: 20080115
  Serious: Yes (Other)
  Sender: FDA-Public Use
  Company Number: A0678759A

PATIENT
  Age: 28 Year
  Sex: Female

DRUGS (5)
  1. ALLI [Suspect]
     Route: 048
     Dates: start: 20070827, end: 20070905
  2. LOTREL [Concomitant]
  3. SYNTHROID [Concomitant]
  4. ACIPHEX [Concomitant]
  5. VITAMINS [Concomitant]

REACTIONS (3)
  - ABDOMINAL PAIN UPPER [None]
  - MUCOUS STOOLS [None]
  - RECTAL HAEMORRHAGE [None]
